FAERS Safety Report 8497461-8 (Version None)
Quarter: 2012Q3

REPORT INFORMATION
  Report Type: 
  Country: None (occurrence: None)
  Receive Date: 20120709
  Receipt Date: 20120612
  Transmission Date: 20120928
  Serious: Yes (Hospitalization)
  Sender: FDA-Public Use
  Company Number: US-AMGEN-USASP2012036572

PATIENT
  Age: 74 Year
  Sex: Female

DRUGS (2)
  1. ENBREL [Suspect]
     Indication: RHEUMATOID ARTHRITIS
     Dosage: 50 MG, QWK
     Dates: start: 19990901
  2. ENBREL [Suspect]
     Indication: OSTEOARTHRITIS

REACTIONS (5)
  - PNEUMONIA [None]
  - RHEUMATOID ARTHRITIS [None]
  - HERPES VIRUS INFECTION [None]
  - THROMBOSIS [None]
  - COAGULOPATHY [None]
